FAERS Safety Report 15662817 (Version 2)
Quarter: 2019Q1

REPORT INFORMATION
  Report Type: Spontaneous
  Country: US (occurrence: US)
  Receive Date: 20181127
  Receipt Date: 20190103
  Transmission Date: 20190417
  Serious: Yes (Other)
  Sender: FDA-Public Use
  Company Number: US-SA-2018SA174961

PATIENT
  Sex: Female

DRUGS (11)
  1. DEXAMETHASONE. [Concomitant]
     Active Substance: DEXAMETHASONE
     Dosage: TAB(S), ORAL, BID, STARTING DAY PRIOR TO TAXOTERE, X 3 DAY(S)
     Route: 048
  2. DEXAMETHASONE. [Concomitant]
     Active Substance: DEXAMETHASONE
     Dosage: 10 MG, QD
     Route: 042
     Dates: start: 20160829, end: 20160829
  3. MIDAZOLAM [Concomitant]
     Active Substance: MIDAZOLAM HYDROCHLORIDE
     Dosage: 2 MG, QD
     Route: 042
     Dates: start: 20160623, end: 20160623
  4. TAXOTERE [Suspect]
     Active Substance: DOCETAXEL
     Indication: BREAST CANCER FEMALE
     Dosage: 151.5 MG, Q3W
     Route: 042
     Dates: start: 20160829, end: 20160829
  5. CYTOXAN [Concomitant]
     Active Substance: CYCLOPHOSPHAMIDE
     Dosage: UNK
  6. NEULASTA [Concomitant]
     Active Substance: PEGFILGRASTIM
     Dosage: 6 MG, QD
     Route: 058
     Dates: start: 20160830, end: 20160830
  7. TAXOTERE [Suspect]
     Active Substance: DOCETAXEL
     Dosage: 10% DOSE REDUCLION WITH CYCLE 112
     Route: 042
     Dates: start: 201609, end: 201609
  8. CYTOXAN [Concomitant]
     Active Substance: CYCLOPHOSPHAMIDE
     Indication: CHEMOTHERAPY
     Dosage: UNK UNK, UNK
     Dates: start: 20160829, end: 20160829
  9. POTASSIUM CHLORIDE. [Concomitant]
     Active Substance: POTASSIUM CHLORIDE
     Dosage: 20 MEQ, BID
     Route: 048
  10. ZANTAC [Concomitant]
     Active Substance: RANITIDINE HYDROCHLORIDE
     Dosage: 50 MG, QD
     Route: 042
     Dates: start: 20160829, end: 20160829
  11. HEPARIN [Concomitant]
     Active Substance: HEPARIN SODIUM
     Dosage: 500 U, QD
     Route: 042
     Dates: start: 20160829, end: 20160829

REACTIONS (1)
  - Alopecia [Not Recovered/Not Resolved]
